FAERS Safety Report 7928572-0 (Version None)
Quarter: 2011Q4

REPORT INFORMATION
  Report Type: 
  Country: None (occurrence: None)
  Receive Date: 20111118
  Receipt Date: 20111109
  Transmission Date: 20120403
  Serious: Yes (Disabling)
  Sender: FDA-Public Use
  Company Number: US-BAYER-2011-108941

PATIENT
  Age: 68 Year
  Sex: Female
  Weight: 40.363 kg

DRUGS (12)
  1. CITALOPRAM HYDROBROMIDE [Concomitant]
     Dosage: UNK
  2. BACLOFEN [Concomitant]
     Dosage: UNK
  3. CETIRIZINE HCL [Concomitant]
     Dosage: UNK
  4. ACID REFLUX DRUG [Concomitant]
     Indication: GASTROOESOPHAGEAL REFLUX DISEASE
  5. TESTOSTERONE [Concomitant]
     Dosage: UNK
  6. CIPROFLOXACIN [Suspect]
     Indication: URINARY TRACT INFECTION
     Dosage: UNK
     Dates: start: 20110101
  7. AMPYRA [Suspect]
     Indication: GAIT DISTURBANCE
     Dosage: 10 MG, QD
     Route: 048
     Dates: start: 20110901
  8. ZETIA [Concomitant]
     Dosage: UNK
  9. TYLENOL W/ CODEINE NO. 3 [Concomitant]
     Dosage: UNK
  10. METHYLPHENIDATE [Concomitant]
     Dosage: UNK
  11. DOCUSATE SODIUM [Concomitant]
     Dosage: UNK
  12. CELEBREX [Concomitant]
     Dosage: UNK

REACTIONS (4)
  - NAUSEA [None]
  - VOMITING [None]
  - ASTHENIA [None]
  - WALKING AID USER [None]
